FAERS Safety Report 17636097 (Version 1)
Quarter: 2020Q2

REPORT INFORMATION
  Report Type: Spontaneous
  Country: US (occurrence: US)
  Receive Date: 20200403
  Receipt Date: 20200403
  Transmission Date: 20200713
  Serious: Yes (Other)
  Sender: FDA-Public Use
  Company Number: None

PATIENT
  Age: 73 Year
  Sex: Female
  Weight: 49.44 kg

DRUGS (7)
  1. MULTI-VITAMIN [Concomitant]
     Active Substance: .ALPHA.-TOCOPHEROL ACETATE, DL-\ASCORBIC ACID\CYANOCOBALAMIN\FLUORIDE ION\FOLIC ACID\NIACIN\PYRIDOXINE\RIBOFLAVIN\THIAMINE\VITAMIN A\VITAMIN D
  2. IMIQUIMOD CRE 5% CREAM [Suspect]
     Active Substance: IMIQUIMOD
     Indication: PRECANCEROUS CONDITION
     Dosage: ?          QUANTITY:0.25 DF DOSAGE FORM;?
     Route: 061
     Dates: start: 20200223, end: 20200311
  3. VITAMIN B-COMPLEX [Concomitant]
     Active Substance: DEXPANTHENOL\NIACINAMIDE\PYRIDOXINE HYDROCHLORIDE\RIBOFLAVIN 5^-PHOSPHATE SODIUM\THIAMINE HYDROCHLORIDE
  4. PREMPRO 0.3MG/1.5MG [Concomitant]
  5. VIT E 400MG [Concomitant]
  6. CITRACAL + D [Concomitant]
     Active Substance: CALCIUM CITRATE\VITAMIN D
  7. VIT C 500MG [Concomitant]

REACTIONS (4)
  - Therapy cessation [None]
  - Chest pain [None]
  - Pruritus [None]
  - Wheezing [None]

NARRATIVE: CASE EVENT DATE: 20200312
